FAERS Safety Report 7513174-0 (Version None)
Quarter: 2011Q2

REPORT INFORMATION
  Report Type: 
  Country: None (occurrence: None)
  Receive Date: 20110531
  Receipt Date: 20110520
  Transmission Date: 20111010
  Serious: Yes (Hospitalization)
  Sender: FDA-Public Use
  Company Number: FR-MERCK-1105USA03711

PATIENT
  Age: 79 Year
  Sex: Female

DRUGS (10)
  1. LASIX [Concomitant]
     Route: 048
  2. OROPERIDYS [Concomitant]
     Indication: NYSTAGMUS
     Route: 065
     Dates: start: 20101229
  3. ISOPTIN [Suspect]
     Route: 048
  4. CINACALCET HYDROCHLORIDE [Concomitant]
     Route: 065
  5. TANGANIL [Concomitant]
     Indication: NYSTAGMUS
     Route: 065
     Dates: start: 20101229
  6. NOVOMIX [Concomitant]
     Indication: NYSTAGMUS
     Route: 065
  7. VYTORIN [Suspect]
     Indication: DYSLIPIDAEMIA
     Route: 048
     Dates: start: 20101214, end: 20110112
  8. ALLOPURINOL [Concomitant]
     Route: 048
  9. NISIS [Concomitant]
     Route: 065
  10. IBUPROFEN [Concomitant]
     Indication: NYSTAGMUS
     Route: 065
     Dates: start: 20101229

REACTIONS (2)
  - RHABDOMYOLYSIS [None]
  - DRUG INTERACTION [None]
